FAERS Safety Report 5247768-2 (Version None)
Quarter: 2007Q1

REPORT INFORMATION
  Report Type: 
  Country: None (occurrence: None)
  Receive Date: 20070227
  Receipt Date: 20070215
  Transmission Date: 20070707
  Serious: Yes (Other)
  Sender: FDA-Public Use
  Company Number: IL-AVENTIS-200711540GDDC

PATIENT
  Age: 26 Year
  Sex: Female

DRUGS (3)
  1. APIDRA [Suspect]
     Route: 058
  2. LANTUS [Suspect]
     Route: 058
  3. AUTOPEN INSULIN INJECTION PEN [Suspect]

REACTIONS (1)
  - DIABETIC KETOACIDOSIS [None]
